FAERS Safety Report 4776991-6 (Version None)
Quarter: 2005Q3

REPORT INFORMATION
  Report Type: 
  Country: None (occurrence: None)
  Receive Date: 20050923
  Receipt Date: 20050914
  Transmission Date: 20060218
  Serious: Yes (Other)
  Sender: FDA-Public Use
  Company Number: US-GLAXOSMITHKLINE-A0574484A

PATIENT
  Age: 36 Year
  Sex: Female

DRUGS (4)
  1. PAXIL CR [Suspect]
     Indication: DEPRESSION
     Dosage: 25MG PER DAY
     Route: 048
     Dates: start: 20050101, end: 20050101
  2. PAXIL [Suspect]
     Indication: DEPRESSION
     Dosage: 30MG AT NIGHT
     Route: 048
     Dates: start: 20030101, end: 20041201
  3. LEVOXYL [Concomitant]
     Indication: THYROID DISORDER
  4. CYTOMEL [Concomitant]

REACTIONS (4)
  - CARDIAC DISORDER [None]
  - EYE DISORDER [None]
  - LOCAL SWELLING [None]
  - SARCOIDOSIS [None]
